FAERS Safety Report 4601128-3 (Version None)
Quarter: 2005Q1

REPORT INFORMATION
  Report Type: 
  Country: None (occurrence: None)
  Receive Date: 20050307
  Receipt Date: 20050307
  Transmission Date: 20050727
  Serious: Yes (Hospitalization, Other)
  Sender: FDA-Public Use
  Company Number: None

PATIENT
  Sex: Female
  Weight: 91.8 kg

DRUGS (4)
  1. GEMCITABINE 1000 MG/M2 IV OVER 30 MIN, Q WK X 7 CYCLE 2 + : (CYCLE = 4 [Suspect]
     Dosage: 1000 MG/M2 IV OVER 30 MIN, Q WK X 7 CYCLE 2 + : (CYCLE = 4 WKS.)
     Route: 042
     Dates: start: 20040310, end: 20050209
  2. GEMCITABINE [Suspect]
     Dosage: 1000 MG/M2 IV OVER 30 MIN, Q WK X3
     Route: 042
     Dates: start: 20040310, end: 20050209
  3. CARDIZEM [Concomitant]
  4. VASOTEC [Concomitant]

REACTIONS (2)
  - OEDEMA PERIPHERAL [None]
  - PLEURAL EFFUSION [None]
